FAERS Safety Report 6865146-7 (Version None)
Quarter: 2010Q3

REPORT INFORMATION
  Report Type: 
  Country: None (occurrence: None)
  Receive Date: 20100721
  Receipt Date: 20080414
  Transmission Date: 20110219
  Serious: No
  Sender: FDA-Public Use
  Company Number: US-PFIZER INC-2008033643

PATIENT
  Sex: Female
  Weight: 44.545 kg

DRUGS (12)
  1. CHANTIX [Suspect]
     Indication: SMOKING CESSATION THERAPY
     Dates: start: 20080407, end: 20080413
  2. ALBUTEROL [Concomitant]
  3. PREDNISONE [Concomitant]
  4. BUSPAR [Concomitant]
  5. ACETYLSALICYLIC ACID [Concomitant]
  6. CARDIZEM [Concomitant]
  7. VYTORIN [Concomitant]
  8. HYDROCODONE [Concomitant]
  9. FISH OIL [Concomitant]
  10. ALL OTHER THERAPEUTIC PRODUCTS [Concomitant]
  11. ANXIOLYTICS [Concomitant]
  12. NICOTINE [Concomitant]

REACTIONS (2)
  - NAUSEA [None]
  - VOMITING [None]
